FAERS Safety Report 6807219-0 (Version None)
Quarter: 2010Q2

REPORT INFORMATION
  Report Type: 
  Country: None (occurrence: None)
  Receive Date: 20100628
  Receipt Date: 20100628
  Transmission Date: 20101027
  Serious: Yes (Death)
  Sender: FDA-Public Use
  Company Number: None

PATIENT
  Age: 47 Year
  Sex: Female
  Weight: 50.8029 kg

DRUGS (5)
  1. BENDAMUSTINE 100MG VIALS FOR RECONSTITUTION CEPHALON [Suspect]
     Indication: BREAST CANCER METASTATIC
     Dosage: 120MG/M2 -188.4-194.0MG- D 1-2 OF 28 D CYC IV
     Route: 042
     Dates: start: 20090616, end: 20091104
  2. ERLOTINIB HYDROCHLORIDE [Suspect]
     Indication: BREAST CANCER METASTATIC
     Dosage: 100MG DAILY D 5-21 OF 28 D CYC
     Dates: start: 20090621, end: 20091123
  3. PACLITAXEL [Concomitant]
  4. BEVACIZUMAB [Concomitant]
  5. PALLIATIVE CHEMOTHERAPY [Concomitant]

REACTIONS (9)
  - ALANINE AMINOTRANSFERASE INCREASED [None]
  - ASPARTATE AMINOTRANSFERASE INCREASED [None]
  - DISEASE PROGRESSION [None]
  - IMMUNOSUPPRESSION [None]
  - LYMPHOPENIA [None]
  - PERTUSSIS [None]
  - PNEUMOCYSTIS JIROVECI PNEUMONIA [None]
  - PNEUMONIA [None]
  - PULMONARY OEDEMA [None]
